FAERS Safety Report 13295785 (Version 1)
Quarter: 2017Q1

REPORT INFORMATION
  Report Type: Spontaneous
  Country: US (occurrence: US)
  Receive Date: 20170303
  Receipt Date: 20170303
  Transmission Date: 20170428
  Serious: No
  Sender: FDA-Public Use
  Company Number: US-ACTELION-A-NJ2017-150526

PATIENT
  Age: 69 Year
  Sex: Female

DRUGS (10)
  1. TUMS [Concomitant]
     Active Substance: CALCIUM CARBONATE
  2. PRILOSEC [Concomitant]
     Active Substance: OMEPRAZOLE MAGNESIUM
  3. LASIX [Concomitant]
     Active Substance: FUROSEMIDE
  4. VITAMIN D [Concomitant]
     Active Substance: CHOLECALCIFEROL
  5. TYLENOL [Concomitant]
     Active Substance: ACETAMINOPHEN
  6. METOPROLOL. [Concomitant]
     Active Substance: METOPROLOL
  7. VITAMIN B12 [Concomitant]
     Active Substance: CYANOCOBALAMIN
  8. MVI [Concomitant]
     Active Substance: VITAMINS
  9. KLOR-CON [Concomitant]
     Active Substance: POTASSIUM CHLORIDE
  10. VALCHLOR [Suspect]
     Active Substance: MECHLORETHAMINE
     Indication: MYCOSIS FUNGOIDES
     Dosage: UNK
     Route: 061
     Dates: start: 20150901

REACTIONS (1)
  - Therapeutic response decreased [Unknown]
